FAERS Safety Report 12135906 (Version 2)
Quarter: 2016Q1

REPORT INFORMATION
  Report Type: Report from Study
  Country: US (occurrence: US)
  Receive Date: 20160302
  Receipt Date: 20160330
  Transmission Date: 20160526
  Serious: No
  Sender: FDA-Public Use
  Company Number: US-AMGEN-USASL2016024514

PATIENT
  Age: 41 Year
  Sex: Female
  Weight: 60.77 kg

DRUGS (1)
  1. ENBREL [Suspect]
     Active Substance: ETANERCEPT
     Indication: ANKYLOSING SPONDYLITIS
     Dosage: 50 MG, QWK
     Route: 065
     Dates: start: 201602

REACTIONS (14)
  - Injection site mass [Unknown]
  - Injection site warmth [Unknown]
  - Knee operation [Unknown]
  - Injection site induration [Recovered/Resolved]
  - Drug hypersensitivity [Unknown]
  - Injection site erythema [Recovered/Resolved]
  - Injection site extravasation [Unknown]
  - Nausea [Unknown]
  - Injection site pruritus [Unknown]
  - Drug intolerance [Unknown]
  - Feeling abnormal [Unknown]
  - Injection site discolouration [Recovered/Resolved]
  - Injection site bruising [Unknown]
  - Injection site pain [Unknown]

NARRATIVE: CASE EVENT DATE: 2016
